FAERS Safety Report 7827625-5 (Version None)
Quarter: 2011Q4

REPORT INFORMATION
  Report Type: 
  Country: None (occurrence: None)
  Receive Date: 20111020
  Receipt Date: 20111017
  Transmission Date: 20120403
  Serious: Yes (Death)
  Sender: FDA-Public Use
  Company Number: PT-ROCHE-1005260

PATIENT

DRUGS (2)
  1. AVASTIN [Suspect]
     Dosage: DRUG WAS STOPPED FOR 10-15 DAYS AGO AND RESTARTED AGAIN
  2. AVASTIN [Suspect]
     Indication: PRODUCT USED FOR UNKNOWN INDICATION

REACTIONS (1)
  - DEATH [None]
